FAERS Safety Report 5204361-5 (Version None)
Quarter: 2007Q1

REPORT INFORMATION
  Report Type: 
  Country: None (occurrence: None)
  Receive Date: 20070110
  Receipt Date: 20060301
  Transmission Date: 20070707
  Serious: No
  Sender: FDA-Public Use
  Company Number: US-BRISTOL-MYERS SQUIBB COMPANY-13300660

PATIENT
  Age: 6 Decade
  Sex: Female

DRUGS (2)
  1. ABILIFY [Suspect]
     Dosage: REDUCED TO 5 MG DAILY, THEN DISCONTINUED
     Dates: start: 20060101
  2. SUPRAX [Concomitant]

REACTIONS (1)
  - URINARY RETENTION [None]
